FAERS Safety Report 16982618 (Version 3)
Quarter: 2025Q2

REPORT INFORMATION
  Report Type: Spontaneous
  Country: DE (occurrence: DE)
  Receive Date: 20191101
  Receipt Date: 20250507
  Transmission Date: 20250716
  Serious: Yes (Hospitalization, Other)
  Sender: ACCORD
  Company Number: None

PATIENT
  Age: 89 Year
  Sex: Female

DRUGS (18)
  1. QUETIAPINE [Suspect]
     Active Substance: QUETIAPINE
     Indication: Depression
     Route: 065
  2. ACETAMINOPHEN [Suspect]
     Active Substance: ACETAMINOPHEN
     Indication: Pain
  3. LORAZEPAM [Suspect]
     Active Substance: LORAZEPAM
     Indication: Depression
     Route: 065
  4. NOVALGIN (METAMIZOLE SODIUM) [Suspect]
     Active Substance: METAMIZOLE SODIUM
     Indication: Pain
     Route: 042
  5. MEPERIDINE HYDROCHLORIDE [Suspect]
     Active Substance: MEPERIDINE HYDROCHLORIDE
     Indication: Pain
  6. DIPYRONE [Suspect]
     Active Substance: DIPYRONE
     Indication: Pain
  7. MEPERIDINE [Interacting]
     Active Substance: MEPERIDINE
     Indication: Pain
     Route: 065
  8. TOLPERISONE [Interacting]
     Active Substance: TOLPERISONE
     Indication: Pain
     Route: 048
  9. CITALOPRAM [Interacting]
     Active Substance: CITALOPRAM
     Indication: Depression
     Route: 065
  10. OXYCONTIN [Interacting]
     Active Substance: OXYCODONE HYDROCHLORIDE
     Indication: Pain
     Route: 065
  11. MIRTAZAPINE [Interacting]
     Active Substance: MIRTAZAPINE
     Indication: Depression
     Route: 065
  12. FOSFOMYCIN TROMETHAMINE [Concomitant]
     Active Substance: FOSFOMYCIN TROMETHAMINE
     Indication: Escherichia infection
     Route: 065
  13. CEFEPIME [Concomitant]
     Active Substance: CEFEPIME HYDROCHLORIDE
     Route: 042
  14. FENTANYL [Concomitant]
     Active Substance: FENTANYL
     Indication: Pain
     Route: 065
  15. DAFALGAN [Concomitant]
     Active Substance: ACETAMINOPHEN
     Indication: Pain
     Route: 042
  16. DIAZEPAM [Concomitant]
     Active Substance: DIAZEPAM
     Route: 054
  17. HALOPERIDOL [Concomitant]
     Active Substance: HALOPERIDOL
  18. MAGNESIUM W/POTASSIUM [Concomitant]
     Indication: Hypokalaemia

REACTIONS (9)
  - Diarrhoea [Recovering/Resolving]
  - Delirium [Recovering/Resolving]
  - Fracture [Recovering/Resolving]
  - Serotonin syndrome [Recovered/Resolved]
  - Hypertension [Recovering/Resolving]
  - Respiratory alkalosis [Recovering/Resolving]
  - Fall [Recovered/Resolved]
  - Hallucination [Recovering/Resolving]
  - Pelvic fracture [Recovering/Resolving]

NARRATIVE: CASE EVENT DATE: 20150101
